FAERS Safety Report 6086093-7 (Version None)
Quarter: 2009Q1

REPORT INFORMATION
  Report Type: 
  Country: None (occurrence: None)
  Receive Date: 20090217
  Receipt Date: 20090217
  Transmission Date: 20090719
  Serious: Yes (Hospitalization)
  Sender: FDA-Public Use
  Company Number: None

PATIENT
  Sex: Female
  Weight: 77.1115 kg

DRUGS (1)
  1. FLUCONAZOLE [Suspect]
     Indication: FUNGAL INFECTION
     Dosage: 1 DOSE 150 MG  ONCE PO
     Route: 048
     Dates: start: 20090210, end: 20090210

REACTIONS (6)
  - DRUG EFFECT DECREASED [None]
  - DYSPHAGIA [None]
  - DYSPNOEA [None]
  - NASOPHARYNGITIS [None]
  - OROPHARYNGEAL PAIN [None]
  - THROAT TIGHTNESS [None]
